FAERS Safety Report 19001537 (Version 2)
Quarter: 2021Q1

REPORT INFORMATION
  Report Type: Spontaneous
  Country: US (occurrence: US)
  Receive Date: 20210312
  Receipt Date: 20210315
  Transmission Date: 20210420
  Serious: No
  Sender: FDA-Public Use
  Company Number: US-FARMAPROD-202008-1086

PATIENT
  Sex: Female
  Weight: 59.02 kg

DRUGS (11)
  1. OMEGA3 FISH OIL VIT D [Concomitant]
  2. ATORVASTATIN CALCIUM. [Concomitant]
     Active Substance: ATORVASTATIN CALCIUM
  3. OXERVATE [Suspect]
     Active Substance: CENEGERMIN-BKBJ
     Dates: start: 20201013
  4. SYSTANE (HYPROMELLOSE 2910 (4000 MPA.S)) [Concomitant]
     Active Substance: HYPROMELLOSE 2910 (4000 MPA.S)
     Dosage: 0.3 % + 0.4% DROPERETTE
  5. PROBIOTIC ACIDOPHILUS [Concomitant]
     Active Substance: LACTOBACILLUS ACIDOPHILUS
  6. FML [Concomitant]
     Active Substance: FLUOROMETHOLONE
  7. ERYTHROMYCIN. [Concomitant]
     Active Substance: ERYTHROMYCIN
  8. ALENDRONATE SODIUM. [Concomitant]
     Active Substance: ALENDRONATE SODIUM
  9. OXERVATE [Suspect]
     Active Substance: CENEGERMIN-BKBJ
     Indication: NEUROTROPHIC KERATOPATHY
     Route: 047
     Dates: start: 20200803, end: 20200929
  10. ASPIRIN. [Concomitant]
     Active Substance: ASPIRIN
  11. RESTASIS [Concomitant]
     Active Substance: CYCLOSPORINE
     Dosage: DROPERETTE

REACTIONS (4)
  - Eye pain [Unknown]
  - Product storage error [Unknown]
  - Wrong technique in product usage process [Unknown]
  - Ocular discomfort [Recovered/Resolved]
